FAERS Safety Report 10600807 (Version 1)
Quarter: 2014Q4

REPORT INFORMATION
  Report Type: Spontaneous
  Country: VN (occurrence: VN)
  Receive Date: 20141124
  Receipt Date: 20141124
  Transmission Date: 20150529
  Serious: Yes (Hospitalization)
  Sender: FDA-Public Use
  Company Number: VN-009507513-1411VNM007449

PATIENT
  Sex: Female
  Weight: 52 kg

DRUGS (1)
  1. FOSAMAX PLUS D [Suspect]
     Active Substance: ALENDRONATE SODIUM\CHOLECALCIFEROL
     Dosage: ONE TABLET, ONCE A WEEK
     Route: 048

REACTIONS (1)
  - Cholelithiasis [Unknown]
